FAERS Safety Report 4427343-X (Version None)
Quarter: 2004Q3

REPORT INFORMATION
  Report Type: 
  Country: None (occurrence: None)
  Receive Date: 20040817
  Receipt Date: 20040810
  Transmission Date: 20050211
  Serious: Yes (Other)
  Sender: FDA-Public Use
  Company Number: US-BRISTOL-MYERS SQUIBB COMPANY-12667937

PATIENT
  Age: 72 Year
  Sex: Female

DRUGS (1)
  1. ERBITUX [Suspect]
     Indication: CARCINOMA
     Dosage: INTERRUPTED AFTER THE 11TH DOSE (AUG-2004)
     Route: 042

REACTIONS (5)
  - BLEPHARITIS [None]
  - CONJUNCTIVITIS [None]
  - MACULAR DEGENERATION [None]
  - PHOTOSENSITIVITY REACTION [None]
  - RASH [None]
